FAERS Safety Report 5405874-3 (Version None)
Quarter: 2007Q3

REPORT INFORMATION
  Report Type: 
  Country: None (occurrence: None)
  Receive Date: 20070806
  Receipt Date: 20070725
  Transmission Date: 20080115
  Serious: Yes (Other)
  Sender: FDA-Public Use
  Company Number: GB-AMGEN-US236974

PATIENT
  Sex: Female

DRUGS (2)
  1. ENBREL [Suspect]
     Indication: DRUG USE FOR UNKNOWN INDICATION
     Dosage: 50MG, FREQUENCY UNKNOWN
     Route: 065
  2. ENBREL [Suspect]
     Dosage: LYOPHILIZED POWDER FORM, 25MG, FREQUENCY UNKNOWN

REACTIONS (2)
  - HYPERSENSITIVITY [None]
  - SWELLING FACE [None]
